FAERS Safety Report 14686541 (Version 1)
Quarter: 2018Q1

REPORT INFORMATION
  Report Type: Spontaneous
  Country: US (occurrence: US)
  Receive Date: 20180326
  Receipt Date: 20180326
  Transmission Date: 20180509
  Serious: No
  Sender: FDA-Public Use
  Company Number: None

PATIENT
  Age: 40 Year
  Sex: Male
  Weight: 64.3 kg

DRUGS (5)
  1. CO-TRIMOZAZOLE (SEPTRIN) [Concomitant]
  2. PACLITAXEL. [Suspect]
     Active Substance: PACLITAXEL
     Indication: KAPOSI^S SARCOMA
     Route: 042
     Dates: start: 20180110, end: 20180221
  3. RIFAMPICIN [Concomitant]
     Active Substance: RIFAMPIN
  4. ISONIAZID. [Concomitant]
     Active Substance: ISONIAZID
  5. EFAVIRENZ/EMTRICITABINE/TENOFOVIR DF [Suspect]
     Active Substance: EFAVIRENZ\EMTRICITABINE\TENOFOVIR DISOPROXIL FUMARATE
     Indication: HIV INFECTION
     Dosage: 1100 MG QHS PO
     Route: 048
     Dates: start: 20180110, end: 20180221

REACTIONS (9)
  - Aspartate aminotransferase increased [None]
  - Blood albumin decreased [None]
  - Blood alkaline phosphatase increased [None]
  - Blood creatinine decreased [None]
  - Hepatotoxicity [None]
  - Blood bicarbonate decreased [None]
  - Blood chloride increased [None]
  - Alanine aminotransferase increased [None]
  - Blood glucose increased [None]

NARRATIVE: CASE EVENT DATE: 20180221
